FAERS Safety Report 4322123-8 (Version None)
Quarter: 2004Q1

REPORT INFORMATION
  Report Type: 
  Country: None (occurrence: None)
  Receive Date: 20040319
  Receipt Date: 20040305
  Transmission Date: 20041129
  Serious: Yes (Death)
  Sender: FDA-Public Use
  Company Number: 2003IM001108

PATIENT
  Age: 71 Year
  Sex: Male

DRUGS (1)
  1. ACTIMMUNE [Suspect]
     Indication: INTERSTITIAL LUNG DISEASE
     Dosage: 16 UG; TIW; SUBCUTANEOUS
     Route: 058
     Dates: start: 20030920, end: 20031010

REACTIONS (2)
  - HYPOXIA [None]
  - RESPIRATORY FAILURE [None]
